FAERS Safety Report 20099080 (Version 1)
Quarter: 2021Q4

REPORT INFORMATION
  Report Type: Spontaneous
  Country: CN (occurrence: CN)
  Receive Date: 20211122
  Receipt Date: 20211122
  Transmission Date: 20220303
  Serious: Yes (Other)
  Sender: FDA-Public Use
  Company Number: CN-ALFASIGMA-2021.19350

PATIENT
  Age: 70 Year
  Sex: Female
  Weight: 61.5 kg

DRUGS (11)
  1. XIFAXAN [Suspect]
     Active Substance: RIFAXIMIN
     Indication: Functional gastrointestinal disorder
     Dosage: 17/OCT/2021-20/OCT/2021 AND 24/OCT/2021-28/OCT/2021
     Route: 048
     Dates: start: 20211017, end: 20211028
  2. ATORVASTATIN CALCIUM [Suspect]
     Active Substance: ATORVASTATIN CALCIUM
     Indication: Arteriosclerosis coronary artery
     Route: 048
     Dates: start: 20200316, end: 20211024
  3. AMLODIPINE BESYLATE [Suspect]
     Active Substance: AMLODIPINE BESYLATE
     Indication: Hypertension
     Route: 048
     Dates: start: 20200316, end: 20211024
  4. TELMISARTAN [Suspect]
     Active Substance: TELMISARTAN
     Indication: Hypertension
     Route: 048
     Dates: start: 20200316, end: 20211024
  5. OMEPRAZOLE [Suspect]
     Active Substance: OMEPRAZOLE
     Indication: Gastroenteritis
     Route: 048
     Dates: start: 20211017, end: 20211023
  6. LEVOFLOXACIN [Suspect]
     Active Substance: LEVOFLOXACIN
     Indication: Gastroenteritis
     Route: 048
     Dates: start: 20211022, end: 20211024
  7. ISEPAMICIN SULFATE [Suspect]
     Active Substance: ISEPAMICIN SULFATE
     Indication: Gastroenteritis
     Route: 041
     Dates: start: 20211022, end: 20211022
  8. GENTAMICIN PROCAINE [Concomitant]
     Indication: Product used for unknown indication
     Route: 048
     Dates: start: 20211017, end: 20211022
  9. PINAVERIUM BROMIDE [Concomitant]
     Active Substance: PINAVERIUM BROMIDE
     Indication: Product used for unknown indication
     Route: 048
     Dates: start: 20211017, end: 20211021
  10. RACEMIC ANISODAMINE HYDROCHLORIDE [Concomitant]
     Indication: Product used for unknown indication
     Route: 041
     Dates: start: 20211022, end: 20211022
  11. MONTMORILLONITE [Concomitant]
     Active Substance: MONTMORILLONITE
     Indication: Product used for unknown indication
     Route: 048
     Dates: start: 20211022, end: 20211024

REACTIONS (2)
  - Hepatic function abnormal [Recovering/Resolving]
  - Intentional product use issue [Recovered/Resolved]

NARRATIVE: CASE EVENT DATE: 20211017
